FAERS Safety Report 8966153 (Version 1)
Quarter: 2012Q4

REPORT INFORMATION
  Report Type: Spontaneous
  Country: US (occurrence: None)
  Receive Date: 20121217
  Receipt Date: 20121217
  Transmission Date: 20130627
  Serious: Yes (Disabling, Other)
  Sender: FDA-Public Use
  Company Number: None

PATIENT
  Age: 45 Year
  Sex: Female
  Weight: 76.66 kg

DRUGS (1)
  1. TORADOL [Suspect]
     Indication: POSTOPERATIVE PAIN RELIEF
     Route: 042
     Dates: start: 20120619, end: 20120621

REACTIONS (4)
  - Pyrexia [None]
  - Chills [None]
  - Incision site erythema [None]
  - Incision site complication [None]
